FAERS Safety Report 7879519-7 (Version None)
Quarter: 2011Q4

REPORT INFORMATION
  Report Type: 
  Country: None (occurrence: None)
  Receive Date: 20111101
  Receipt Date: 20070905
  Transmission Date: 20120403
  Serious: Yes (Congenital Anomaly)
  Sender: FDA-Public Use
  Company Number: US-GLAXOSMITHKLINE-A0680286A

PATIENT
  Sex: Female

DRUGS (1)
  1. PAXIL [Suspect]
     Indication: PRODUCT USED FOR UNKNOWN INDICATION
     Route: 064
     Dates: start: 20020101

REACTIONS (7)
  - SENSORY INTEGRATIVE DYSFUNCTION [None]
  - TRAUMATIC LUNG INJURY [None]
  - LEARNING DISORDER [None]
  - EATING DISORDER [None]
  - MATERNAL EXPOSURE DURING PREGNANCY [None]
  - PULMONARY MALFORMATION [None]
  - DEVELOPMENTAL DELAY [None]
